FAERS Safety Report 18786573 (Version 1)
Quarter: 2021Q1

REPORT INFORMATION
  Report Type: Spontaneous
  Country: AU (occurrence: AU)
  Receive Date: 20210125
  Receipt Date: 20210125
  Transmission Date: 20210419
  Serious: No
  Sender: FDA-Public Use
  Company Number: None

PATIENT
  Age: 31 Year
  Sex: Female
  Weight: 63 kg

DRUGS (6)
  1. KYLEENA [Suspect]
     Active Substance: LEVONORGESTREL
     Indication: INTRAUTERINE CONTRACEPTION
     Dosage: ?          QUANTITY:1 1;OTHER FREQUENCY:5 YEARS INSERTED;?
     Route: 067
     Dates: start: 20190404
  2. VITAMINES FOR HAIR GROWTH [Concomitant]
  3. ONLY IUD [Concomitant]
  4. OMEGA 3 [Concomitant]
     Active Substance: OMEGA-3 FATTY ACIDS
  5. COLLAGEN [Concomitant]
     Active Substance: COLLAGEN
  6. MAGNESIUM [Concomitant]
     Active Substance: MAGNESIUM

REACTIONS (3)
  - Headache [None]
  - Complication associated with device [None]
  - Migraine [None]

NARRATIVE: CASE EVENT DATE: 20210125
